FAERS Safety Report 9753174 (Version 1)
Quarter: 2013Q4

REPORT INFORMATION
  Report Type: Spontaneous
  Country: US (occurrence: US)
  Receive Date: 20131213
  Receipt Date: 20131213
  Transmission Date: 20140711
  Serious: No
  Sender: FDA-Public Use
  Company Number: US-GILEAD-2010-0026803

PATIENT
  Sex: Female

DRUGS (1)
  1. LETAIRIS [Suspect]
     Indication: PULMONARY ARTERIAL HYPERTENSION
     Route: 048
     Dates: start: 20100115

REACTIONS (5)
  - Pneumonia [Unknown]
  - Oedema [Unknown]
  - Palpitations [Unknown]
  - Flushing [Unknown]
  - Dyspnoea [Unknown]
